FAERS Safety Report 4494020-9 (Version None)
Quarter: 2004Q4

REPORT INFORMATION
  Report Type: 
  Country: None (occurrence: None)
  Receive Date: 20041105
  Receipt Date: 20041027
  Transmission Date: 20050328
  Serious: Yes (Life-Threatening)
  Sender: FDA-Public Use
  Company Number: AU-JNJFOC-20041008046

PATIENT
  Sex: Female

DRUGS (10)
  1. TRAMAL [Suspect]
     Indication: DRUG USE FOR UNKNOWN INDICATION
     Route: 065
  2. ALENDRONATE SODIUM [Concomitant]
  3. BECLOMETHASONE DIPROPIONATE [Concomitant]
  4. CIPRAMIL [Concomitant]
  5. IRON [Concomitant]
  6. FLIX [Concomitant]
  7. MONZOR [Concomitant]
  8. PARACETAMOL [Concomitant]
  9. ZOTON [Concomitant]
  10. DIAMICRON [Concomitant]

REACTIONS (4)
  - CONFUSIONAL STATE [None]
  - FALL [None]
  - HALLUCINATION, VISUAL [None]
  - HEPATITIS CHOLESTATIC [None]
